FAERS Safety Report 4627420-4 (Version None)
Quarter: 2005Q1

REPORT INFORMATION
  Report Type: 
  Country: None (occurrence: None)
  Receive Date: 20050331
  Receipt Date: 20050317
  Transmission Date: 20050727
  Serious: Yes (Other)
  Sender: FDA-Public Use
  Company Number: US014611

PATIENT
  Age: 47 Year
  Sex: Female
  Weight: 82.5547 kg

DRUGS (4)
  1. PROVIGIL [Suspect]
     Indication: SLEEP APNOEA SYNDROME
     Dosage: 200 MG QD ORAL
     Route: 048
     Dates: start: 20040701
  2. LEVOTHYROXINE [Concomitant]
  3. ESTRATEST [Concomitant]
  4. PREVACID [Concomitant]

REACTIONS (8)
  - ACCOMMODATION DISORDER [None]
  - HYPERMETROPIA [None]
  - IMPAIRED DRIVING ABILITY [None]
  - INSOMNIA [None]
  - MYOPIA [None]
  - TUNNEL VISION [None]
  - VISION BLURRED [None]
  - VISUAL ACUITY REDUCED [None]
